FAERS Safety Report 12808937 (Version 3)
Quarter: 2017Q1

REPORT INFORMATION
  Report Type: Spontaneous
  Country: KR (occurrence: KR)
  Receive Date: 20161004
  Receipt Date: 20170228
  Transmission Date: 20170428
  Serious: Yes (Hospitalization, Other)
  Sender: FDA-Public Use
  Company Number: KR-SA-2016SA177849

PATIENT
  Age: 70 Year
  Sex: Male

DRUGS (8)
  1. MIDAZOLAM [Concomitant]
     Active Substance: MIDAZOLAM HYDROCHLORIDE
     Indication: ANAESTHESIA
  2. FENTANYL. [Concomitant]
     Active Substance: FENTANYL
     Indication: ANAESTHESIA
     Dosage: CONTINUOUS INFUSION
  3. VECURONIUM [Concomitant]
     Active Substance: VECURONIUM BROMIDE
     Indication: NEUROMUSCULAR BLOCKADE
  4. OXYGEN. [Concomitant]
     Active Substance: OXYGEN
     Indication: ANAESTHESIA
     Dosage: 50 %
  5. THIOPENTAL SODIUM. [Concomitant]
     Active Substance: THIOPENTAL SODIUM
     Indication: ANAESTHESIA
  6. FENTANYL. [Concomitant]
     Active Substance: FENTANYL
     Indication: ANAESTHESIA
  7. SEVOFLURANE. [Concomitant]
     Active Substance: SEVOFLURANE
     Indication: ANAESTHESIA
     Dosage: 1 VOL% IN 50% AIR/OXYGEN MIXTURE
  8. EPINEPHRINE. [Suspect]
     Active Substance: EPINEPHRINE
     Indication: REPERFUSION INJURY
     Dosage: TWICE
     Route: 042

REACTIONS (5)
  - Haemodynamic instability [Recovered/Resolved]
  - Systolic anterior motion of mitral valve [Recovered/Resolved]
  - Venous oxygen saturation decreased [Recovered/Resolved]
  - Mitral valve incompetence [Recovered/Resolved]
  - Left ventricle outflow tract obstruction [Recovered/Resolved]
